FAERS Safety Report 7323229-1 (Version None)
Quarter: 2011Q1

REPORT INFORMATION
  Report Type: 
  Country: None (occurrence: None)
  Receive Date: 20110301
  Receipt Date: 20110215
  Transmission Date: 20110831
  Serious: Yes (Hospitalization)
  Sender: FDA-Public Use
  Company Number: US-CELGENEUS-163-21880-11010616

PATIENT
  Sex: Male
  Weight: 84.898 kg

DRUGS (25)
  1. EPOGEN [Concomitant]
     Route: 065
     Dates: end: 20110103
  2. CRESTOR [Concomitant]
     Route: 065
  3. LISINOPRIL [Concomitant]
     Route: 065
  4. QVAR 40 [Concomitant]
     Route: 065
  5. REVLIMID [Suspect]
     Indication: MYELODYSPLASTIC SYNDROME
     Dosage: 10 MILLIGRAM
     Route: 048
     Dates: start: 20100825, end: 20110103
  6. TOPROL-XL [Concomitant]
     Route: 065
  7. ACETAMINOPHEN [Concomitant]
     Route: 065
  8. VIDAZA [Concomitant]
     Dosage: 75 MILLIGRAM/SQ. METER
     Route: 065
     Dates: start: 20101227, end: 20101230
  9. ADVAIR DISKUS 100/50 [Concomitant]
     Route: 065
  10. AVELOX [Concomitant]
     Route: 065
  11. SERTRALINE [Concomitant]
     Route: 065
  12. PLAVIX [Concomitant]
     Route: 065
  13. FAMCICLOVIR [Concomitant]
     Route: 065
  14. DEXAMETHASONE [Concomitant]
     Dosage: 8 MILLIGRAM
     Route: 065
     Dates: end: 20110103
  15. FINASTERIDE [Concomitant]
     Route: 065
  16. PREVACID [Concomitant]
     Route: 065
  17. SINGULAIR [Concomitant]
     Route: 065
  18. EXJADE [Concomitant]
     Dosage: 1500 MILLIGRAM
     Route: 065
  19. ASPIRIN [Concomitant]
     Route: 065
  20. FUROSEMIDE [Concomitant]
     Route: 065
  21. NITROGLYCERIN [Concomitant]
     Route: 065
  22. ALBUTEROL [Concomitant]
     Route: 065
  23. KLOR-CON [Concomitant]
     Route: 065
  24. HYDROCODONE [Concomitant]
     Route: 065
  25. MULTI-VITAMIN [Concomitant]
     Route: 065

REACTIONS (3)
  - PNEUMONIA [None]
  - SEPSIS [None]
  - ANAEMIA [None]
